FAERS Safety Report 25801834 (Version 1)
Quarter: 2025Q3

REPORT INFORMATION
  Report Type: Spontaneous
  Country: EG (occurrence: EG)
  Receive Date: 20250915
  Receipt Date: 20250915
  Transmission Date: 20251020
  Serious: Yes (Hospitalization, Other)
  Sender: SANOFI AVENTIS
  Company Number: EG-SA-2025SA270046

PATIENT
  Age: 48 Year
  Sex: Female

DRUGS (1)
  1. AMARYL [Suspect]
     Active Substance: GLIMEPIRIDE
     Indication: Diabetes mellitus
     Dosage: 2 MG, QD
     Route: 048
     Dates: start: 2021

REACTIONS (4)
  - Uterine leiomyoma [Recovered/Resolved with Sequelae]
  - Vaginal haemorrhage [Recovered/Resolved with Sequelae]
  - Diabetes mellitus inadequate control [Recovered/Resolved with Sequelae]
  - Glycosylated haemoglobin increased [Recovered/Resolved with Sequelae]

NARRATIVE: CASE EVENT DATE: 20250701
